FAERS Safety Report 6158901-2 (Version None)
Quarter: 2009Q2

REPORT INFORMATION
  Report Type: 
  Country: None (occurrence: None)
  Receive Date: 20090408
  Receipt Date: 20090323
  Transmission Date: 20091009
  Serious: Yes (Hospitalization)
  Sender: FDA-Public Use
  Company Number: 200915515GPV

PATIENT
  Age: 62 Year
  Sex: Male

DRUGS (5)
  1. FLUDARABINE PHOSPHATE [Suspect]
     Indication: CHRONIC LYMPHOCYTIC LEUKAEMIA
     Dosage: 120 MG, ORAL
     Route: 048
     Dates: start: 20071203, end: 20080506
  2. CYCLOPHOSPHAMIDE [Suspect]
     Indication: CHRONIC LYMPHOCYTIC LEUKAEMIA
     Dosage: 1200 MG, ORAL
     Route: 048
     Dates: start: 20071203, end: 20080506
  3. MABTHERA (RITUXIMAB) (RITUXIMAB) [Suspect]
     Indication: CHRONIC LYMPHOCYTIC LEUKAEMIA
  4. NEORECORMON (EPOETIN BETA) [Concomitant]
  5. GRANOCYTE (LENOGRASTIM) [Concomitant]

REACTIONS (1)
  - LARGE CELL CARCINOMA OF THE RESPIRATORY TRACT STAGE UNSPECIFIED [None]
